FAERS Safety Report 14076341 (Version 1)
Quarter: 2017Q4

REPORT INFORMATION
  Report Type: Spontaneous
  Country: US (occurrence: US)
  Receive Date: 20171011
  Receipt Date: 20171011
  Transmission Date: 20180321
  Serious: No
  Sender: FDA-Public Use
  Company Number: US-MISSION PHARMACAL COMPANY-2029678

PATIENT
  Age: 67 Year
  Sex: Female

DRUGS (2)
  1. THIOLA [Suspect]
     Active Substance: TIOPRONIN
     Indication: CYSTINURIA
     Route: 065
     Dates: start: 20170205
  2. MELOXICAM. [Concomitant]
     Active Substance: MELOXICAM
     Route: 065

REACTIONS (7)
  - Upper respiratory tract congestion [Unknown]
  - Malaise [Unknown]
  - Cough [Unknown]
  - Paranasal sinus discomfort [Unknown]
  - Multiple allergies [Unknown]
  - Fine motor skill dysfunction [Unknown]
  - Weight increased [Unknown]
